FAERS Safety Report 7497407-5 (Version None)
Quarter: 2011Q2

REPORT INFORMATION
  Report Type: 
  Country: None (occurrence: None)
  Receive Date: 20110516
  Receipt Date: 20110505
  Transmission Date: 20111010
  Serious: Yes (Hospitalization)
  Sender: FDA-Public Use
  Company Number: 2011SP020510

PATIENT
  Sex: Male

DRUGS (1)
  1. PEGETRON (PEGYLATED INTERFERON ALFA-2B W/RIBAVIRIN) [Suspect]
     Indication: HEPATITIS C
     Dosage: 120 MGC; SC
     Route: 058
     Dates: start: 20110401, end: 20110501

REACTIONS (3)
  - LUNG DISORDER [None]
  - LOSS OF CONSCIOUSNESS [None]
  - HALLUCINATION [None]
